FAERS Safety Report 4881643-8 (Version None)
Quarter: 2006Q1

REPORT INFORMATION
  Report Type: 
  Country: None (occurrence: None)
  Receive Date: 20060112
  Receipt Date: 20051228
  Transmission Date: 20060701
  Serious: Yes (Other)
  Sender: FDA-Public Use
  Company Number: 2005BI018348

PATIENT
  Sex: Female
  Weight: 59.4212 kg

DRUGS (1)
  1. AVONEX [Suspect]
     Indication: MULTIPLE SCLEROSIS
     Dosage: IM
     Route: 030
     Dates: end: 20051101

REACTIONS (11)
  - BRONCHIECTASIS [None]
  - BRONCHIOLITIS [None]
  - BRONCHITIS [None]
  - CHRONIC OBSTRUCTIVE PULMONARY DISEASE [None]
  - GASTROOESOPHAGEAL REFLUX DISEASE [None]
  - MORAXELLA INFECTION [None]
  - PSEUDOMONAS INFECTION [None]
  - SARCOIDOSIS [None]
  - SCAR [None]
  - SLEEP APNOEA SYNDROME [None]
  - SPUTUM CULTURE POSITIVE [None]
